FAERS Safety Report 9236749 (Version 1)
Quarter: 2013Q2

REPORT INFORMATION
  Report Type: Spontaneous
  Country: IT (occurrence: IT)
  Receive Date: 20130417
  Receipt Date: 20130417
  Transmission Date: 20140414
  Serious: Yes (Hospitalization)
  Sender: FDA-Public Use
  Company Number: IT-GLAXOSMITHKLINE-B0884510A

PATIENT
  Age: 25 Year
  Sex: Male

DRUGS (3)
  1. RANIDIL [Suspect]
     Indication: GASTROENTERITIS
     Dosage: 100MG PER DAY
     Route: 042
     Dates: start: 20130406, end: 20130406
  2. SPASMEX [Suspect]
     Indication: GASTROENTERITIS
     Dosage: 160MG PER DAY
     Route: 042
     Dates: start: 20130406, end: 20130406
  3. PERFALGAN [Suspect]
     Indication: GASTROENTERITIS
     Dosage: 50ML PER DAY
     Route: 042
     Dates: start: 20130406, end: 20130406

REACTIONS (3)
  - Hypersensitivity [Recovered/Resolved]
  - Pruritus generalised [Recovered/Resolved]
  - Lip swelling [Recovered/Resolved]
